FAERS Safety Report 16639783 (Version 5)
Quarter: 2019Q3

REPORT INFORMATION
  Report Type: Spontaneous
  Country: US (occurrence: US)
  Receive Date: 20190727
  Receipt Date: 20190831
  Transmission Date: 20191004
  Serious: No
  Sender: FDA-Public Use
  Company Number: US-UNITED THERAPEUTICS-UNT-2019-012224

PATIENT
  Age: 43 Year
  Sex: Female
  Weight: 54.88 kg

DRUGS (2)
  1. REMODULIN [Suspect]
     Active Substance: TREPROSTINIL
     Indication: PULMONARY ARTERIAL HYPERTENSION
     Dosage: 0.034 ?G/KG, CONTINUING (0.02 ML/HR)
     Route: 058
     Dates: start: 20190712
  2. SILDENAFIL CITRATE. [Concomitant]
     Active Substance: SILDENAFIL CITRATE
     Indication: PRODUCT USED FOR UNKNOWN INDICATION
     Dosage: UNK
     Route: 065

REACTIONS (9)
  - Headache [Not Recovered/Not Resolved]
  - Flushing [Unknown]
  - Infusion site pain [Not Recovered/Not Resolved]
  - Product dose omission [Unknown]
  - Pain [Unknown]
  - Nausea [Unknown]
  - Infusion site erythema [Not Recovered/Not Resolved]
  - Diarrhoea [Recovered/Resolved]
  - Sunburn [Unknown]

NARRATIVE: CASE EVENT DATE: 201907
